FAERS Safety Report 18834535 (Version 1)
Quarter: 2021Q1

REPORT INFORMATION
  Report Type: Spontaneous
  Country: US (occurrence: US)
  Receive Date: 20210203
  Receipt Date: 20210203
  Transmission Date: 20210419
  Serious: No
  Sender: FDA-Public Use
  Company Number: US-ALLERGAN-2036673US

PATIENT
  Sex: Female
  Weight: 74 kg

DRUGS (19)
  1. LEXAPRO [Concomitant]
     Active Substance: ESCITALOPRAM OXALATE
     Indication: ANXIETY
     Dosage: 10 MG, QD
     Route: 048
  2. BOTOX [Suspect]
     Active Substance: ONABOTULINUMTOXINA
     Indication: MIGRAINE
     Dosage: UNK UNK, SINGLE
     Dates: start: 20201001, end: 20201001
  3. BOTOX [Suspect]
     Active Substance: ONABOTULINUMTOXINA
     Dosage: UNK UNK, SINGLE
     Dates: start: 20201001, end: 20201001
  4. BOTOX [Suspect]
     Active Substance: ONABOTULINUMTOXINA
     Dosage: UNK UNK, SINGLE
     Dates: start: 20200116, end: 20200116
  5. BOTOX [Suspect]
     Active Substance: ONABOTULINUMTOXINA
     Dosage: UNK UNK, SINGLE
     Dates: start: 20200116, end: 20200116
  6. CRESTOR [Concomitant]
     Active Substance: ROSUVASTATIN CALCIUM
     Indication: BLOOD CHOLESTEROL INCREASED
     Dosage: 5 MG EVERY OTHER DAY
     Route: 048
  7. BOTOX [Suspect]
     Active Substance: ONABOTULINUMTOXINA
     Dosage: UNK UNK, SINGLE
     Dates: start: 20201001, end: 20201001
  8. BOTOX [Suspect]
     Active Substance: ONABOTULINUMTOXINA
     Dosage: UNK UNK, SINGLE
     Dates: start: 20200116, end: 20200116
  9. BOTOX [Suspect]
     Active Substance: ONABOTULINUMTOXINA
     Dosage: UNK UNK, SINGLE
     Dates: start: 20200116, end: 20200116
  10. SUMATRIPTAN. [Concomitant]
     Active Substance: SUMATRIPTAN
     Dosage: 100 MG TB 1 TB AT LEAST 2 HRS BETWEEN DOSES AS NEEDED ORALLY TWICE A DAY
     Route: 048
  11. BOTOX [Suspect]
     Active Substance: ONABOTULINUMTOXINA
     Dosage: UNK UNK, SINGLE
     Dates: start: 20201001, end: 20201001
  12. BOTOX [Suspect]
     Active Substance: ONABOTULINUMTOXINA
     Dosage: UNK UNK, SINGLE
     Dates: start: 20201001, end: 20201001
  13. LIDOCAINE. [Concomitant]
     Active Substance: LIDOCAINE
     Dosage: 1?3 PATCHES APPLIED TOPICALLY 12 HRS ON/12 HRS OFF
  14. BOTOX [Suspect]
     Active Substance: ONABOTULINUMTOXINA
     Dosage: UNK UNK, SINGLE
     Dates: start: 20201001, end: 20201001
  15. BOTOX [Suspect]
     Active Substance: ONABOTULINUMTOXINA
     Dosage: UNK UNK, SINGLE
     Dates: start: 20200116, end: 20200116
  16. BOTOX [Suspect]
     Active Substance: ONABOTULINUMTOXINA
     Dosage: UNK UNITS, SINGLE
     Dates: start: 201910, end: 201910
  17. BOTOX [Suspect]
     Active Substance: ONABOTULINUMTOXINA
     Dosage: UNK UNK, SINGLE
     Dates: start: 20200116, end: 20200116
  18. BIOTIN [Concomitant]
     Active Substance: BIOTIN
     Route: 048
  19. VOLTAREN [Concomitant]
     Active Substance: DICLOFENAC SODIUM
     Dosage: QID PRN
     Route: 061

REACTIONS (14)
  - Sleep disorder [Unknown]
  - Dysstasia [Unknown]
  - Migraine [Unknown]
  - Neck pain [Unknown]
  - Arthralgia [Unknown]
  - Muscle spasms [Unknown]
  - Adverse event [Unknown]
  - Headache [Recovered/Resolved]
  - Tenderness [Unknown]
  - Enthesopathy [Unknown]
  - Status migrainosus [Unknown]
  - Fatigue [Unknown]
  - Gait disturbance [Unknown]
  - Intentional dose omission [Unknown]
